FAERS Safety Report 10012894 (Version 2)
Quarter: 2014Q1

REPORT INFORMATION
  Report Type: Spontaneous
  Country: US (occurrence: US)
  Receive Date: 20140314
  Receipt Date: 20140314
  Transmission Date: 20141002
  Serious: No
  Sender: FDA-Public Use
  Company Number: US-PFIZER INC-2014038556

PATIENT
  Sex: Female
  Weight: 71 kg

DRUGS (3)
  1. VIAGRA [Suspect]
     Indication: SKIN DISCOLOURATION
     Dosage: 100 MG, DAILY
     Dates: end: 201311
  2. VIAGRA [Suspect]
     Indication: SKIN DISORDER
  3. VIAGRA [Suspect]
     Indication: CIRCULATORY COLLAPSE

REACTIONS (1)
  - Drug ineffective for unapproved indication [Unknown]
